FAERS Safety Report 4510820-0 (Version None)
Quarter: 2004Q4

REPORT INFORMATION
  Report Type: 
  Country: None (occurrence: None)
  Receive Date: 20041122
  Receipt Date: 20041108
  Transmission Date: 20050328
  Serious: Yes (Hospitalization)
  Sender: FDA-Public Use
  Company Number: FABR-10870

PATIENT
  Age: 31 Year
  Sex: Female

DRUGS (3)
  1. FABRAZYME [Suspect]
     Indication: FABRY'S DISEASE
     Dosage: 40 MG Q2WKS IV
     Route: 042
     Dates: start: 20040629, end: 20040921
  2. FABRAZYME [Suspect]
     Indication: FABRY'S DISEASE
     Dosage: 40 MG Q2WKS IV
     Route: 042
     Dates: start: 20041102
  3. ACETAMINOPHEN [Concomitant]

REACTIONS (3)
  - CARDIAC DISORDER [None]
  - PLEURAL EFFUSION [None]
  - RENAL IMPAIRMENT [None]
